FAERS Safety Report 8298696-X (Version None)
Quarter: 2012Q2

REPORT INFORMATION
  Report Type: 
  Country: None (occurrence: None)
  Receive Date: 20120419
  Receipt Date: 20120416
  Transmission Date: 20120825
  Serious: Yes (Other)
  Sender: FDA-Public Use
  Company Number: US-TEVA-333823USA

PATIENT
  Age: 50 Year
  Sex: Male

DRUGS (4)
  1. BUDESONIDE [Suspect]
     Indication: GASTROENTERITIS EOSINOPHILIC
     Route: 048
  2. SODIUM CROMOGLICATE [Concomitant]
     Indication: GASTROENTERITIS EOSINOPHILIC
     Route: 065
  3. VALGANCICLOVIR [Concomitant]
     Indication: CYTOMEGALOVIRUS INFECTION
     Route: 048
  4. MONTELUKAST [Concomitant]
     Indication: GASTROENTERITIS EOSINOPHILIC
     Route: 065

REACTIONS (9)
  - DIARRHOEA [None]
  - FAILURE TO THRIVE [None]
  - ABDOMINAL PAIN UPPER [None]
  - ABDOMINAL RIGIDITY [None]
  - VOMITING [None]
  - ABDOMINAL TENDERNESS [None]
  - ISOSPORIASIS [None]
  - ANAEMIA [None]
  - NAUSEA [None]
